FAERS Safety Report 12094337 (Version 2)
Quarter: 2016Q2

REPORT INFORMATION
  Report Type: Report from Study
  Country: JP (occurrence: JP)
  Receive Date: 20160219
  Receipt Date: 20160523
  Transmission Date: 20160815
  Serious: Yes (Hospitalization)
  Sender: FDA-Public Use
  Company Number: JP-EISAI MEDICAL RESEARCH-EC-2016-014461

PATIENT
  Age: 84 Year
  Sex: Female
  Weight: 35 kg

DRUGS (17)
  1. LENVIMA [Suspect]
     Active Substance: LENVATINIB
     Route: 048
     Dates: start: 20151109, end: 20151122
  2. NEXIUM [Concomitant]
     Active Substance: ESOMEPRAZOLE MAGNESIUM
  3. LENVIMA [Suspect]
     Active Substance: LENVATINIB
     Route: 048
     Dates: start: 20151019, end: 20151101
  4. LEVOTHYROXINE SODIUM HYDRATE [Concomitant]
  5. PREDONINE [Concomitant]
     Active Substance: PREDNISOLONE\PREDNISOLONE ACETATE\PREDNISOLONE SODIUM SUCCINATE
  6. WARFARIN [Concomitant]
     Active Substance: WARFARIN
  7. SAMSCA [Concomitant]
     Active Substance: TOLVAPTAN
  8. FEBURIC [Concomitant]
     Active Substance: FEBUXOSTAT
  9. LENVIMA [Suspect]
     Active Substance: LENVATINIB
     Indication: PAPILLARY THYROID CANCER
     Route: 048
     Dates: start: 20150813, end: 20150819
  10. MAGMITT [Concomitant]
     Active Substance: MAGNESIUM OXIDE
  11. FRANDOL [Concomitant]
     Active Substance: ISOSORBIDE DINITRATE
  12. LENVIMA [Suspect]
     Active Substance: LENVATINIB
     Route: 048
     Dates: start: 20150829, end: 20151014
  13. BAKTAR [Concomitant]
     Active Substance: SULFAMETHOXAZOLE\TRIMETHOPRIM
  14. OXYCONTIN [Suspect]
     Active Substance: OXYCODONE HYDROCHLORIDE
     Indication: CANCER PAIN
     Route: 048
     Dates: end: 201508
  15. OXINORM [Suspect]
     Active Substance: OXYCODONE HYDROCHLORIDE
     Indication: CANCER PAIN
     Route: 048
     Dates: start: 201508
  16. MAINTATE [Concomitant]
     Active Substance: BISOPROLOL FUMARATE
  17. LUPRAC [Concomitant]
     Active Substance: TORSEMIDE

REACTIONS (3)
  - Somnolence [Recovering/Resolving]
  - Vomiting [Recovered/Resolved]
  - Decreased appetite [Recovered/Resolved]

NARRATIVE: CASE EVENT DATE: 20150819
